FAERS Safety Report 5729929-9 (Version None)
Quarter: 2008Q2

REPORT INFORMATION
  Report Type: 
  Country: None (occurrence: None)
  Receive Date: 20080502
  Receipt Date: 20080416
  Transmission Date: 20081010
  Serious: Yes (Other)
  Sender: FDA-Public Use
  Company Number: SPV1-2008-00842

PATIENT

DRUGS (1)
  1. VYVANSE [Suspect]

REACTIONS (3)
  - ANGER [None]
  - HYPERTENSION [None]
  - OBSESSIVE-COMPULSIVE DISORDER [None]
